FAERS Safety Report 15784279 (Version 1)
Quarter: 2019Q1

REPORT INFORMATION
  Report Type: Spontaneous
  Country: CA (occurrence: CA)
  Receive Date: 20190103
  Receipt Date: 20190103
  Transmission Date: 20190417
  Serious: Yes (Other)
  Sender: FDA-Public Use
  Company Number: CA-ROCHE-2236257

PATIENT
  Age: 48 Year
  Sex: Female

DRUGS (1)
  1. XELODA [Suspect]
     Active Substance: CAPECITABINE
     Indication: BREAST CANCER METASTATIC
     Dosage: 8 CYCLES
     Route: 065
     Dates: start: 201802, end: 201809

REACTIONS (14)
  - Breast disorder [Unknown]
  - Lymphoedema [Unknown]
  - Ill-defined disorder [Unknown]
  - Metastases to skin [Unknown]
  - Inflammation [Unknown]
  - Dyspnoea [Unknown]
  - Metastases to bone [Unknown]
  - Lymphatic disorder [Unknown]
  - Breath sounds abnormal [Unknown]
  - Breast swelling [Unknown]
  - Breast ulceration [Unknown]
  - Breast pain [Unknown]
  - Neuralgia [Unknown]
  - Metastases to bone [Unknown]

NARRATIVE: CASE EVENT DATE: 20180430
